FAERS Safety Report 6356064-1 (Version None)
Quarter: 2009Q3

REPORT INFORMATION
  Report Type: 
  Country: None (occurrence: None)
  Receive Date: 20090911
  Receipt Date: 20090911
  Transmission Date: 20100115
  Serious: Yes (Hospitalization, Other)
  Sender: FDA-Public Use
  Company Number: None

PATIENT

DRUGS (1)
  1. LISINOPRIL [Suspect]
     Indication: HYPERTENSION
     Dates: start: 20080101, end: 20090101

REACTIONS (4)
  - LIP SWELLING [None]
  - OEDEMA MOUTH [None]
  - PRURITUS [None]
  - SWELLING FACE [None]
